FAERS Safety Report 5235824-4 (Version None)
Quarter: 2007Q1

REPORT INFORMATION
  Report Type: 
  Country: None (occurrence: None)
  Receive Date: 20061208
  Receipt Date: 20051202
  Transmission Date: 20070707
  Serious: Yes (Other)
  Sender: FDA-Public Use
  Company Number: 2005UW18235

PATIENT
  Age: 58 Year
  Sex: Female
  Weight: 74.842 kg

DRUGS (3)
  1. CRESTOR [Suspect]
     Indication: BLOOD CHOLESTEROL INCREASED
     Dosage: 5 MG PO
     Route: 048
     Dates: start: 20050801
  2. ASPIRIN [Concomitant]
  3. VITAMINS [Concomitant]

REACTIONS (3)
  - EYELID DISORDER [None]
  - SKIN DISORDER [None]
  - SWELLING [None]
